FAERS Safety Report 7502438-2 (Version None)
Quarter: 2011Q2

REPORT INFORMATION
  Report Type: 
  Country: None (occurrence: None)
  Receive Date: 20110523
  Receipt Date: 20110523
  Transmission Date: 20111010
  Serious: Yes (Other)
  Sender: FDA-Public Use
  Company Number: None

PATIENT
  Age: 48 Year
  Sex: Female
  Weight: 99.3377 kg

DRUGS (3)
  1. BENZTROPINE MESYLATE [Suspect]
     Dosage: 0.5MG 2X DAILY
     Dates: start: 20110301, end: 20110513
  2. DIVALPROEX EXTENDED-RELEASE [Suspect]
     Indication: SCHIZOPHRENIA
     Dosage: 500MG 3 TAB 2X DAILY
     Dates: start: 20110301, end: 20110513
  3. ZYPREXA [Suspect]

REACTIONS (2)
  - OEDEMA PERIPHERAL [None]
  - HEADACHE [None]
